FAERS Safety Report 20925340 (Version 2)
Quarter: 2022Q3

REPORT INFORMATION
  Report Type: Spontaneous
  Country: US (occurrence: None)
  Receive Date: 20220607
  Receipt Date: 20220701
  Transmission Date: 20221027
  Serious: No
  Sender: FDA-Public Use
  Company Number: 2022A200710

PATIENT
  Age: 837 Month
  Sex: Female
  Weight: 56.2 kg

DRUGS (1)
  1. BUDESONIDE\FORMOTEROL\GLYCOPYRRONIUM [Suspect]
     Active Substance: BUDESONIDE\FORMOTEROL\GLYCOPYRRONIUM
     Indication: Chronic obstructive pulmonary disease
     Dosage: 160/9/4.8MCG, 120 INHALATIONS, TWO PUFFS TWICE A DAY
     Route: 055
     Dates: start: 202112

REACTIONS (10)
  - Dyspnoea [Unknown]
  - Device effect incomplete [Unknown]
  - Product taste abnormal [Unknown]
  - Product dose omission issue [Unknown]
  - Device malfunction [Unknown]
  - Device issue [Unknown]
  - Device delivery system issue [Unknown]
  - Device occlusion [Unknown]
  - Device use issue [Unknown]
  - Device malfunction [Unknown]

NARRATIVE: CASE EVENT DATE: 20220401
